FAERS Safety Report 7440723-3 (Version None)
Quarter: 2011Q2

REPORT INFORMATION
  Report Type: 
  Country: None (occurrence: None)
  Receive Date: 20110427
  Receipt Date: 20110426
  Transmission Date: 20111010
  Serious: Yes (Death, Other)
  Sender: FDA-Public Use
  Company Number: US-TEVA-243659USA

PATIENT
  Sex: Male
  Weight: 82.628 kg

DRUGS (1)
  1. COPAXONE [Suspect]
     Indication: PRIMARY PROGRESSIVE MULTIPLE SCLEROSIS
     Route: 058
     Dates: start: 20100101

REACTIONS (1)
  - PANCREATIC CARCINOMA [None]
